FAERS Safety Report 5258338-4 (Version None)
Quarter: 2007Q1

REPORT INFORMATION
  Report Type: 
  Country: None (occurrence: None)
  Receive Date: 20070308
  Receipt Date: 20070227
  Transmission Date: 20070707
  Serious: Yes (Hospitalization)
  Sender: FDA-Public Use
  Company Number: FR-JNJFOC-20070300063

PATIENT
  Age: 54 Year
  Sex: Female
  Weight: 90 kg

DRUGS (6)
  1. RISPERDAL [Suspect]
     Indication: PSYCHOTIC DISORDER
     Route: 048
  2. HALDOL [Suspect]
     Indication: PSYCHOTIC DISORDER
     Route: 042
  3. NOZINAN [Suspect]
     Indication: PSYCHOTIC DISORDER
     Route: 048
  4. NORSET [Concomitant]
     Indication: DYSTHYMIC DISORDER
     Route: 065
  5. SEROPLEX [Concomitant]
     Indication: DYSTHYMIC DISORDER
     Route: 048
  6. VALIUM [Concomitant]
     Indication: DYSTHYMIC DISORDER
     Route: 065

REACTIONS (1)
  - AGRANULOCYTOSIS [None]
